FAERS Safety Report 4988363-X (Version None)
Quarter: 2006Q2

REPORT INFORMATION
  Report Type: 
  Country: None (occurrence: None)
  Receive Date: 20060426
  Receipt Date: 20060418
  Transmission Date: 20061013
  Serious: No
  Sender: FDA-Public Use
  Company Number: TPA2006A00498

PATIENT

DRUGS (1)
  1. ROZEREM [Suspect]
     Dosage: 16 MG, 2 IN 1 D, PER ORAL
     Route: 048

REACTIONS (1)
  - DRUG EFFECT DECREASED [None]
